FAERS Safety Report 10635776 (Version 2)
Quarter: 2015Q1

REPORT INFORMATION
  Report Type: Spontaneous
  Country: US (occurrence: US)
  Receive Date: 20141205
  Receipt Date: 20150204
  Transmission Date: 20150720
  Serious: Yes (Congenital Anomaly)
  Sender: FDA-Public Use
  Company Number: US-ELI_LILLY_AND_COMPANY-US201411010088

PATIENT
  Age: 0 Day
  Weight: 2.49 kg

DRUGS (4)
  1. KLONOPIN [Concomitant]
     Active Substance: CLONAZEPAM
     Dosage: 0.5 MG, TID
     Dates: start: 20010627
  2. PROZAC [Suspect]
     Active Substance: FLUOXETINE HYDROCHLORIDE
     Indication: ANXIETY DISORDER
     Dosage: 20 MG, QD
     Route: 064
     Dates: start: 20010405, end: 20010627
  3. PROZAC [Suspect]
     Active Substance: FLUOXETINE HYDROCHLORIDE
     Dosage: 40 MG, QD
     Route: 064
     Dates: start: 20010627
  4. KLONOPIN [Concomitant]
     Active Substance: CLONAZEPAM
     Indication: ANXIETY DISORDER
     Dosage: 0.5 MG, BID
     Route: 064

REACTIONS (8)
  - Nasal obstruction [Unknown]
  - Cleft lip and palate [Recovered/Resolved with Sequelae]
  - Foetal exposure during pregnancy [Recovered/Resolved]
  - Premature baby [Unknown]
  - Dyspnoea [Unknown]
  - Oral cavity fistula [Unknown]
  - Dental alveolar anomaly [Unknown]
  - Nasal septum deviation [Unknown]

NARRATIVE: CASE EVENT DATE: 20020129
